FAERS Safety Report 7770489-9 (Version None)
Quarter: 2011Q3

REPORT INFORMATION
  Report Type: 
  Country: None (occurrence: None)
  Receive Date: 20110922
  Receipt Date: 20110401
  Transmission Date: 20111222
  Serious: No
  Sender: FDA-Public Use
  Company Number: US-ASTRAZENECA-2011SE18724

PATIENT
  Sex: Female
  Weight: 114.3 kg

DRUGS (5)
  1. SEROQUEL [Suspect]
     Indication: PANIC DISORDER
     Route: 048
     Dates: start: 20101201
  2. SEROQUEL [Suspect]
     Route: 048
  3. SEROQUEL [Suspect]
     Indication: ARTHRALGIA
     Route: 048
     Dates: start: 20101201
  4. SEROQUEL [Suspect]
     Route: 048
  5. WELLBUTRIN [Concomitant]

REACTIONS (4)
  - ARTHRALGIA [None]
  - OFF LABEL USE [None]
  - INCREASED APPETITE [None]
  - WEIGHT INCREASED [None]
